FAERS Safety Report 7292552-1 (Version None)
Quarter: 2011Q1

REPORT INFORMATION
  Report Type: 
  Country: None (occurrence: None)
  Receive Date: 20110215
  Receipt Date: 20110208
  Transmission Date: 20110831
  Serious: Yes (Hospitalization)
  Sender: FDA-Public Use
  Company Number: JP-BAYER-2011-010622

PATIENT
  Age: 85 Year
  Sex: Female

DRUGS (3)
  1. CILOSTAZOL [Concomitant]
     Route: 065
  2. LANSOPRAZOLE [Concomitant]
     Route: 065
  3. ASPIRIN [Suspect]
     Route: 048

REACTIONS (4)
  - COLITIS COLLAGENOUS [None]
  - ABDOMINAL PAIN LOWER [None]
  - PYREXIA [None]
  - VOMITING [None]
